FAERS Safety Report 15616726 (Version 1)
Quarter: 2018Q4

REPORT INFORMATION
  Report Type: Spontaneous
  Country: US (occurrence: US)
  Receive Date: 20181109
  Receipt Date: 20181109
  Transmission Date: 20190205
  Serious: No
  Sender: FDA-Public Use
  Company Number: None

PATIENT
  Age: 64 Year
  Sex: Female
  Weight: 104.33 kg

DRUGS (4)
  1. RASUVO [Suspect]
     Active Substance: METHOTREXATE SODIUM
  2. RASUVO [Suspect]
     Active Substance: METHOTREXATE SODIUM
     Indication: RHEUMATOID ARTHRITIS
     Dosage: ?          OTHER DOSE:20MG (0.4ML) ;?
     Route: 058
     Dates: start: 201609
  3. RASUVO [Suspect]
     Active Substance: METHOTREXATE SODIUM
     Indication: ARTHRALGIA
  4. RASUVO [Suspect]
     Active Substance: METHOTREXATE SODIUM
     Indication: GRANULOMATOSIS WITH POLYANGIITIS

REACTIONS (1)
  - Hyperhidrosis [None]
